FAERS Safety Report 6125083-2 (Version None)
Quarter: 2009Q1

REPORT INFORMATION
  Report Type: 
  Country: None (occurrence: None)
  Receive Date: 20090319
  Receipt Date: 20090309
  Transmission Date: 20090719
  Serious: Yes (Hospitalization)
  Sender: FDA-Public Use
  Company Number: US-MERCK-0903USA01885

PATIENT
  Age: 78 Year
  Sex: Female

DRUGS (6)
  1. HYDRODIURIL [Suspect]
     Route: 048
  2. SIMVASTATIN [Concomitant]
     Route: 048
  3. TRAZODONE HYDROCHLORIDE [Concomitant]
     Route: 065
  4. ALBUTEROL [Concomitant]
     Route: 065
  5. BRIMONIDINE TARTRATE [Concomitant]
     Route: 065
  6. LEVOBUNOLOL HYDROCHLORIDE [Concomitant]
     Route: 065

REACTIONS (7)
  - ANAPHYLACTIC REACTION [None]
  - DIARRHOEA [None]
  - FATIGUE [None]
  - INFLUENZA LIKE ILLNESS [None]
  - NAUSEA [None]
  - SEPTIC SHOCK [None]
  - VOMITING [None]
